FAERS Safety Report 6255339-4 (Version None)
Quarter: 2009Q3

REPORT INFORMATION
  Report Type: 
  Country: None (occurrence: None)
  Receive Date: 20090702
  Receipt Date: 20090629
  Transmission Date: 20100115
  Serious: Yes (Death)
  Sender: FDA-Public Use
  Company Number: US-WYE-H09941409

PATIENT
  Sex: Male

DRUGS (3)
  1. PRISTIQ [Suspect]
     Indication: DEPRESSION
     Dosage: UNKNOWN DOSE
     Route: 048
     Dates: start: 20090316, end: 20090322
  2. LORAZEPAM [Concomitant]
     Dosage: UNKNOWN
  3. AMBIEN [Concomitant]
     Dosage: UNKNOWN

REACTIONS (3)
  - COMPLETED SUICIDE [None]
  - DRUG WITHDRAWAL SYNDROME [None]
  - GUN SHOT WOUND [None]
